FAERS Safety Report 6259103-1 (Version None)
Quarter: 2009Q3

REPORT INFORMATION
  Report Type: 
  Country: None (occurrence: None)
  Receive Date: 20090707
  Receipt Date: 20090623
  Transmission Date: 20100115
  Serious: Yes (Hospitalization, Disabling)
  Sender: FDA-Public Use
  Company Number: GB-MYLANLABS-2009S1001783

PATIENT
  Sex: Female

DRUGS (1)
  1. OMEPRAZOLE [Suspect]
     Indication: DYSPEPSIA
     Route: 048
     Dates: start: 20080201, end: 20080201

REACTIONS (2)
  - MULTI-ORGAN FAILURE [None]
  - TOXIC EPIDERMAL NECROLYSIS [None]
